FAERS Safety Report 11914064 (Version 1)
Quarter: 2016Q1

REPORT INFORMATION
  Report Type: Spontaneous
  Country: FR (occurrence: FR)
  Receive Date: 20160113
  Receipt Date: 20160113
  Transmission Date: 20160526
  Serious: Yes (Death)
  Sender: FDA-Public Use
  Company Number: FR-FRESENIUS KABI-FK201600109

PATIENT
  Age: 19 Year
  Sex: Female

DRUGS (3)
  1. PARACETAMOL (MANUFACTURER UNKNOWN) [Suspect]
     Active Substance: ACETAMINOPHEN
     Indication: INTENTIONAL OVERDOSE
     Route: 048
  2. ASPIRIN. [Suspect]
     Active Substance: ASPIRIN
     Indication: INTENTIONAL OVERDOSE
     Route: 048
  3. TRIMEBUTINE [Suspect]
     Active Substance: TRIMEBUTINE
     Indication: INTENTIONAL OVERDOSE
     Route: 048

REACTIONS (6)
  - Intentional overdose [Fatal]
  - Neurological symptom [Fatal]
  - Pyramidal tract syndrome [Fatal]
  - Seizure [Fatal]
  - Cardio-respiratory arrest [Fatal]
  - Pneumonia aspiration [Fatal]
